FAERS Safety Report 9241591 (Version 1)
Quarter: 2013Q2

REPORT INFORMATION
  Report Type: Report from Study
  Country: JP (occurrence: JP)
  Receive Date: 20130419
  Receipt Date: 20130419
  Transmission Date: 20140414
  Serious: Yes (Hospitalization)
  Sender: FDA-Public Use
  Company Number: JP-SHIRE-ALL1-2012-06570

PATIENT
  Age: 78 Year
  Sex: Male

DRUGS (19)
  1. 405 (LANTHANUM CARBONATE) [Suspect]
     Indication: HYPERPHOSPHATAEMIA
     Dosage: 750 MG, OTHER(IMMEDIATEYLY AFTER MEALS)
     Route: 048
     Dates: start: 20090513, end: 20090709
  2. 405 (LANTHANUM CARBONATE) [Suspect]
     Dosage: 1500 MG, OTHER(TOTAL DAILY DOSE)
     Route: 048
     Dates: start: 20090710
  3. TANKARU [Concomitant]
     Indication: HYPERPHOSPHATAEMIA
     Dosage: 1500 MG, UNKNOWN
     Route: 048
  4. ALFAROL [Concomitant]
     Indication: PRODUCT USED FOR UNKNOWN INDICATION
     Dosage: 0.25 ?G, UNKNOWN
     Route: 048
     Dates: start: 20081104
  5. OXAROL [Concomitant]
     Indication: HYPERPARATHYROIDISM SECONDARY
     Dosage: 5 ?G, 1X/WEEK
     Route: 042
     Dates: start: 20100917
  6. OXAROL [Concomitant]
     Dosage: 5 ?G, 1X/WEEK
     Route: 042
     Dates: start: 20090515, end: 20090621
  7. OXAROL [Concomitant]
     Dosage: 10 ?G, 1X/WEEK
     Route: 042
     Dates: start: 20090622
  8. OXAROL [Concomitant]
     Dosage: 5 ?G, 1X/WEEK
     Route: 042
     Dates: start: 20091218, end: 20100527
  9. OXAROL [Concomitant]
     Dosage: 10 ?G, 1X/WEEK
     Route: 042
     Dates: start: 20100528, end: 20100917
  10. FERO GRADUMET [Concomitant]
     Indication: IRON DEFICIENCY ANAEMIA
     Dosage: 105 MG, UNKNOWN
     Route: 048
  11. MOBIC [Concomitant]
     Indication: ARTHRALGIA
     Dosage: 10 MG, UNKNOWN
     Route: 048
  12. ADALAT CR [Concomitant]
     Indication: HYPERTENSION
     Dosage: 20 MG, UNKNOWN
     Route: 048
  13. BLOPRESS [Concomitant]
     Indication: HYPERTENSION
     Dosage: 8 MG, UNKNOWN
     Route: 048
  14. ASPARA K [Concomitant]
     Indication: HYPOCALCAEMIA
     Dosage: 600 MG, UNKNOWN
     Route: 048
  15. IRBETAN [Concomitant]
     Indication: HYPERTENSION
     Dosage: 100 MG, UNKNOWN
     Route: 048
  16. METHYLCOBAL [Concomitant]
     Indication: HYPOVITAMINOSIS
     Dosage: 750 ?G, UNKNOWN
     Route: 048
  17. NEOPHYLLIN                         /00003701/ [Concomitant]
     Indication: ASTHMA
     Dosage: 300 MG, UNKNOWN
     Route: 048
  18. MYSLEE [Concomitant]
     Indication: INSOMNIA
     Dosage: 5 MG, UNKNOWN
     Route: 048
  19. TAKEPRON [Concomitant]
     Indication: GASTROINTESTINAL ULCER
     Dosage: 30 MG, UNKNOWN
     Route: 048

REACTIONS (3)
  - Ileus paralytic [Recovered/Resolved]
  - Vomiting [Recovered/Resolved]
  - Nausea [Recovered/Resolved]
